FAERS Safety Report 23125046 (Version 3)
Quarter: 2024Q1

REPORT INFORMATION
  Report Type: Report from Study
  Country: US (occurrence: US)
  Receive Date: 20231030
  Receipt Date: 20240111
  Transmission Date: 20240409
  Serious: No
  Sender: FDA-Public Use
  Company Number: US-002147023-NVSC2023US229479

PATIENT
  Sex: Male

DRUGS (1)
  1. KESIMPTA [Suspect]
     Active Substance: OFATUMUMAB
     Indication: Product used for unknown indication
     Dosage: UNK
     Route: 065

REACTIONS (4)
  - Hypoaesthesia [Unknown]
  - Paraesthesia [Unknown]
  - Drooling [Unknown]
  - Disease recurrence [Unknown]
